FAERS Safety Report 7999580-9 (Version None)
Quarter: 2011Q4

REPORT INFORMATION
  Report Type: 
  Country: None (occurrence: None)
  Receive Date: 20111221
  Receipt Date: 20111216
  Transmission Date: 20120403
  Serious: Yes (Disabling, Other)
  Sender: FDA-Public Use
  Company Number: US-PFIZER INC-2011132464

PATIENT
  Sex: Female

DRUGS (2)
  1. CHANTIX [Suspect]
     Indication: SMOKING CESSATION THERAPY
     Dosage: UNK,
     Dates: start: 20080101, end: 20080201
  2. WELLBUTRIN [Concomitant]
     Indication: DEPRESSION
     Dosage: UNK
     Dates: start: 20040101

REACTIONS (4)
  - DEPRESSION [None]
  - INTENTIONAL OVERDOSE [None]
  - ANXIETY [None]
  - SUICIDE ATTEMPT [None]
